FAERS Safety Report 11360094 (Version 2)
Quarter: 2015Q4

REPORT INFORMATION
  Report Type: Spontaneous
  Country: FR (occurrence: FR)
  Receive Date: 20150810
  Receipt Date: 20151016
  Transmission Date: 20160304
  Serious: Yes (Hospitalization, Other)
  Sender: FDA-Public Use
  Company Number: FR-ACCORD-032884

PATIENT
  Age: 68 Year
  Sex: Male

DRUGS (9)
  1. GEMCITABINE ACCORD [Suspect]
     Active Substance: GEMCITABINE HYDROCHLORIDE
     Indication: PRODUCT USED FOR UNKNOWN INDICATION
     Route: 042
     Dates: start: 20141023, end: 20150416
  2. ROCEPHINE [Concomitant]
     Active Substance: CEFTRIAXONE SODIUM
  3. TAVANIC [Concomitant]
     Active Substance: LEVOFLOXACIN
  4. CISPLATIN. [Suspect]
     Active Substance: CISPLATIN
     Indication: PRODUCT USED FOR UNKNOWN INDICATION
     Dates: start: 20130918
  5. AVLOCARDYL [Concomitant]
     Active Substance: PROPRANOLOL HYDROCHLORIDE
     Dates: start: 2006, end: 2014
  6. AUGMENTIN [Concomitant]
     Active Substance: AMOXICILLIN\CLAVULANATE POTASSIUM
  7. LEVOTHYROX [Concomitant]
     Active Substance: LEVOTHYROXINE
     Dates: start: 2006, end: 2014
  8. GEMZAR [Suspect]
     Active Substance: GEMCITABINE HYDROCHLORIDE
     Indication: PRODUCT USED FOR UNKNOWN INDICATION
     Dates: start: 20130918
  9. AMOXICILLIN. [Concomitant]
     Active Substance: AMOXICILLIN

REACTIONS (7)
  - Pleural effusion [Unknown]
  - Weight decreased [Unknown]
  - Acute kidney injury [Recovered/Resolved]
  - Toxicity to various agents [Unknown]
  - Capillary leak syndrome [Recovered/Resolved]
  - Lung disorder [Unknown]
  - Neutropenia [Unknown]

NARRATIVE: CASE EVENT DATE: 20141217
